FAERS Safety Report 8000237-9 (Version None)
Quarter: 2011Q4

REPORT INFORMATION
  Report Type: 
  Country: None (occurrence: None)
  Receive Date: 20111123
  Receipt Date: 20111012
  Transmission Date: 20120403
  Serious: Yes (Other)
  Sender: FDA-Public Use
  Company Number: 337153

PATIENT
  Sex: Female

DRUGS (2)
  1. METFORMIN METFORMIN) TABLET [Concomitant]
  2. VICTOZA [Suspect]
     Indication: TYPE 2 DIABETES MELLITUS
     Dates: start: 20110201, end: 20110901

REACTIONS (1)
  - PANCREATITIS [None]
